FAERS Safety Report 6620214-X (Version None)
Quarter: 2010Q1

REPORT INFORMATION
  Report Type: 
  Country: None (occurrence: None)
  Receive Date: 20100308
  Receipt Date: 20100308
  Transmission Date: 20100710
  Serious: Yes (Other)
  Sender: FDA-Public Use
  Company Number: None

PATIENT
  Age: 53 Year
  Sex: Female
  Weight: 143.3367 kg

DRUGS (2)
  1. SIMVASTATIN [Suspect]
     Dosage: 40.MG ONCE A DAY;  40. MG ONCE A DAY
     Dates: start: 20080121, end: 20090101
  2. SIMVASTATIN [Suspect]
     Dosage: 40.MG ONCE A DAY;  40. MG ONCE A DAY
     Dates: end: 20100206

REACTIONS (5)
  - ABDOMINAL PAIN UPPER [None]
  - ARTHRALGIA [None]
  - PRURITUS [None]
  - RESPIRATORY DISORDER [None]
  - VISION BLURRED [None]
